FAERS Safety Report 15346603 (Version 1)
Quarter: 2018Q3

REPORT INFORMATION
  Report Type: Spontaneous
  Country: US (occurrence: US)
  Receive Date: 20180828
  Receipt Date: 20180828
  Transmission Date: 20181010
  Serious: Yes (Other)
  Sender: FDA-Public Use
  Company Number: None

PATIENT
  Age: 65 Year
  Sex: Male
  Weight: 90 kg

DRUGS (4)
  1. ATORVASTATIN [Concomitant]
     Active Substance: ATORVASTATIN
  2. PROAIR HFA [Suspect]
     Active Substance: ALBUTEROL SULFATE
     Indication: ASTHMA
     Dosage: ?          QUANTITY:200 SPRAY(S);?
     Route: 055
     Dates: start: 20180814, end: 20180828
  3. LISINOPRIL. [Concomitant]
     Active Substance: LISINOPRIL
  4. ASA [Concomitant]
     Active Substance: ASPIRIN

REACTIONS (3)
  - Discomfort [None]
  - Lung disorder [None]
  - Feeling hot [None]

NARRATIVE: CASE EVENT DATE: 20180814
